FAERS Safety Report 23260902 (Version 1)
Quarter: 2023Q4

REPORT INFORMATION
  Report Type: Report from Study
  Country: US (occurrence: US)
  Receive Date: 20231205
  Receipt Date: 20231205
  Transmission Date: 20240110
  Serious: No
  Sender: FDA-Public Use
  Company Number: US-ALXN-A202312165

PATIENT
  Sex: Female

DRUGS (1)
  1. SOLIRIS [Suspect]
     Active Substance: ECULIZUMAB
     Indication: Myasthenia gravis
     Dosage: UNK
     Route: 065
     Dates: start: 20180910

REACTIONS (3)
  - Bladder disorder [Recovering/Resolving]
  - Urge incontinence [Recovering/Resolving]
  - Stress urinary incontinence [Recovering/Resolving]
